FAERS Safety Report 22039125 (Version 1)
Quarter: 2023Q1

REPORT INFORMATION
  Report Type: Spontaneous
  Country: US (occurrence: US)
  Receive Date: 20230227
  Receipt Date: 20230227
  Transmission Date: 20230418
  Serious: Yes (Hospitalization)
  Sender: FDA-Public Use
  Company Number: US-CTI BIOPHARMA-2023US03394

PATIENT

DRUGS (19)
  1. VONJO [Suspect]
     Active Substance: PACRITINIB
     Indication: Myelofibrosis
     Dosage: 100 MG, BID
     Route: 048
     Dates: start: 20221102
  2. ALLEGRA ALLERGY [Concomitant]
     Active Substance: FEXOFENADINE HYDROCHLORIDE
  3. PRILOSEC [Concomitant]
     Active Substance: OMEPRAZOLE MAGNESIUM
  4. DYMISTA [Concomitant]
     Active Substance: AZELASTINE HYDROCHLORIDE\FLUTICASONE PROPIONATE
  5. HYDREA [Concomitant]
     Active Substance: HYDROXYUREA
  6. ZITHROMAX [Concomitant]
     Active Substance: AZITHROMYCIN DIHYDRATE
  7. MINERALS\VITAMINS [Concomitant]
     Active Substance: MINERALS\VITAMINS
  8. ALLOPURINOL [Concomitant]
     Active Substance: ALLOPURINOL
  9. LEXAPRO [Concomitant]
     Active Substance: ESCITALOPRAM OXALATE
  10. RECLAST [Concomitant]
     Active Substance: ZOLEDRONIC ACID
  11. AVAPRO [Concomitant]
     Active Substance: IRBESARTAN
  12. ASPIRIN [Concomitant]
     Active Substance: ASPIRIN
  13. LEVOTHYROXINE [Concomitant]
     Active Substance: LEVOTHYROXINE
  14. BENADRYL [Concomitant]
     Active Substance: DIPHENHYDRAMINE HYDROCHLORIDE
  15. LEVAQUIN [Concomitant]
     Active Substance: LEVOFLOXACIN
  16. CENTRUM SILVER [ASCORBIC ACID;BETACAROTENE;BIOTIN;CALCIUM;CHROMIUM;COL [Concomitant]
  17. OSCAL D [CALCIUM CARBONATE;VITAMIN D NOS] [Concomitant]
  18. FERRLECIT [Concomitant]
     Active Substance: SODIUM FERRIC GLUCONATE COMPLEX
  19. VENOFER [Concomitant]
     Active Substance: IRON SUCROSE

REACTIONS (1)
  - Fall [Recovering/Resolving]
